FAERS Safety Report 9803140 (Version 1)
Quarter: 2014Q1

REPORT INFORMATION
  Report Type: Spontaneous
  Country: US (occurrence: None)
  Receive Date: 20140106
  Receipt Date: 20140106
  Transmission Date: 20141002
  Serious: Yes (Hospitalization)
  Sender: FDA-Public Use
  Company Number: None

PATIENT
  Age: 62 Year
  Sex: Female
  Weight: 110.68 kg

DRUGS (7)
  1. MIDOSTAURIN [Suspect]
     Indication: ACUTE MYELOID LEUKAEMIA
     Dosage: 50MG BID PO DAY 6-21
     Route: 048
  2. BORTEZOMIB [Suspect]
     Indication: ACUTE MYELOID LEUKAEMIA
     Dosage: 1.3MG/M2 SQ DAYS 8+15
  3. CHOLECALCIFEROL (VITAMIN D) [Concomitant]
  4. LORAZEPAM (ATIVAN) [Concomitant]
  5. MULTIPLE VITAMINS-MINERALS (MULTIVITAMIN P0) [Concomitant]
  6. OXYCODONE RCL [Concomitant]
  7. CALCIUM GLUCONATE [Concomitant]

REACTIONS (9)
  - Febrile neutropenia [None]
  - Diarrhoea [None]
  - Hypophosphataemia [None]
  - Abdominal pain [None]
  - Nausea [None]
  - Blood pressure diastolic decreased [None]
  - Atelectasis [None]
  - Dyspnoea [None]
  - Hypoxia [None]
